FAERS Safety Report 7065483-X (Version None)
Quarter: 2010Q4

REPORT INFORMATION
  Report Type: 
  Country: None (occurrence: None)
  Receive Date: 20101027
  Receipt Date: 20101020
  Transmission Date: 20110411
  Serious: Yes (Other)
  Sender: FDA-Public Use
  Company Number: US-PFIZER INC-2010133692

PATIENT
  Sex: Male
  Weight: 113.38 kg

DRUGS (7)
  1. NEURONTIN [Suspect]
     Indication: PAIN IN EXTREMITY
     Dosage: 800 MG, 2X/DAY
     Route: 048
     Dates: start: 20030101, end: 20040101
  2. NEURONTIN [Suspect]
     Dosage: 800 MG, 4X/DAY
     Dates: start: 20040101
  3. CELEBREX [Suspect]
     Indication: ANTIINFLAMMATORY THERAPY
     Dosage: 200 MG, 1X/DAY
     Route: 048
  4. BACLOFEN [Suspect]
     Indication: PAIN IN EXTREMITY
     Dosage: 10 MG, 3X/DAY
     Route: 048
     Dates: start: 20040101
  5. METFORMIN HCL/PIOGLITAZONE HCL [Suspect]
     Indication: DIABETES MELLITUS
     Dosage: 15/850MG
     Route: 048
     Dates: start: 20080101
  6. SITAGLIPTIN [Suspect]
     Indication: DIABETES MELLITUS
     Dosage: 100 MG, 1X/DAY
     Route: 048
     Dates: start: 20080101
  7. IMDUR [Suspect]
     Dosage: 30 MG, 1X/DAY
     Route: 048

REACTIONS (1)
  - WEIGHT INCREASED [None]
